FAERS Safety Report 18365190 (Version 1)
Quarter: 2020Q4

REPORT INFORMATION
  Report Type: Spontaneous
  Country: US (occurrence: US)
  Receive Date: 20201009
  Receipt Date: 20201009
  Transmission Date: 20210114
  Serious: Yes (Other)
  Sender: FDA-Public Use
  Company Number: None

PATIENT
  Age: 90 Year
  Sex: Female

DRUGS (1)
  1. HYLAND^S LEG CRAMPS OINTMENT [Suspect]
     Active Substance: HOMEOPATHICS
     Indication: MUSCLE SPASMS

REACTIONS (5)
  - Pruritus [None]
  - Hypersensitivity [None]
  - Skin reaction [None]
  - Rash pruritic [None]
  - Feeling hot [None]
